FAERS Safety Report 6253414-1 (Version None)
Quarter: 2009Q3

REPORT INFORMATION
  Report Type: 
  Country: None (occurrence: None)
  Receive Date: 20090701
  Receipt Date: 20090623
  Transmission Date: 20100115
  Serious: Yes (Hospitalization)
  Sender: FDA-Public Use
  Company Number: US-WYE-H09872209

PATIENT
  Age: 40 Year
  Sex: Female
  Weight: 134 kg

DRUGS (2)
  1. TORISEL [Suspect]
     Indication: ENDOMETRIAL CANCER
     Dosage: 25 MG ON DAYS 1,8, 15, AND 22
     Route: 042
     Dates: start: 20090106, end: 20090120
  2. BEVACIZUMAB [Suspect]
     Indication: ENDOMETRIAL CANCER
     Dosage: 10 MG/KG ON DAYS 1 AND 15
     Route: 042
     Dates: start: 20090106, end: 20090120

REACTIONS (13)
  - BLOOD CREATININE ABNORMAL [None]
  - CELLULITIS [None]
  - CONFUSIONAL STATE [None]
  - FATIGUE [None]
  - FUNGAL SKIN INFECTION [None]
  - HAEMOGLOBIN DECREASED [None]
  - HYPOCALCAEMIA [None]
  - HYPONATRAEMIA [None]
  - HYPOTHYROIDISM [None]
  - MUCOSAL INFLAMMATION [None]
  - NAUSEA [None]
  - RENAL FAILURE [None]
  - URINARY TRACT INFECTION STAPHYLOCOCCAL [None]
